FAERS Safety Report 12587711 (Version 2)
Quarter: 2016Q3

REPORT INFORMATION
  Report Type: Spontaneous
  Country: US (occurrence: US)
  Receive Date: 20160725
  Receipt Date: 20160822
  Transmission Date: 20161109
  Serious: No
  Sender: FDA-Public Use
  Company Number: US-GLAXOSMITHKLINE-US2016101964

PATIENT
  Age: 58 Year
  Sex: Male

DRUGS (5)
  1. COREG CR [Suspect]
     Active Substance: CARVEDILOL PHOSPHATE
     Dosage: 80 MG, QD
     Route: 048
  2. BENICAR [Concomitant]
     Active Substance: OLMESARTAN MEDOXOMIL
  3. CRESTOR [Concomitant]
     Active Substance: ROSUVASTATIN CALCIUM
  4. COREG CR [Suspect]
     Active Substance: CARVEDILOL PHOSPHATE
     Dosage: 60 MG, QD
     Route: 048
  5. COREG CR [Suspect]
     Active Substance: CARVEDILOL PHOSPHATE
     Indication: MYOCARDIAL INFARCTION
     Dosage: 20 MG, QD
     Route: 048
     Dates: start: 2012

REACTIONS (1)
  - Palpitations [Recovered/Resolved]

NARRATIVE: CASE EVENT DATE: 201604
